FAERS Safety Report 6699514-3 (Version None)
Quarter: 2010Q2

REPORT INFORMATION
  Report Type: 
  Country: None (occurrence: None)
  Receive Date: 20100427
  Receipt Date: 20100427
  Transmission Date: 20101027
  Serious: Yes (Hospitalization)
  Sender: FDA-Public Use
  Company Number: None

PATIENT
  Age: 56 Year
  Sex: Female
  Weight: 81.6475 kg

DRUGS (1)
  1. LOVENOX [Suspect]
     Indication: THROMBOSIS PROPHYLAXIS
     Dosage: 40 MG EVERY DAY SQ
     Route: 058
     Dates: start: 20091231, end: 20100114

REACTIONS (3)
  - HAEMATOMA [None]
  - POST PROCEDURAL COMPLICATION [None]
  - RESUSCITATION [None]
